FAERS Safety Report 22147788 (Version 1)
Quarter: 2023Q1

REPORT INFORMATION
  Report Type: Spontaneous
  Country: US (occurrence: None)
  Receive Date: 20230328
  Receipt Date: 20230328
  Transmission Date: 20230417
  Serious: Yes (Hospitalization, Other)
  Sender: FDA-Public Use
  Company Number: 2023A068993

PATIENT
  Sex: Female

DRUGS (3)
  1. SYMLIN [Suspect]
     Active Substance: PRAMLINTIDE ACETATE
     Route: 058
  2. VICTOZA [Suspect]
     Active Substance: LIRAGLUTIDE
     Dates: start: 2019
  3. LINZESS [Concomitant]
     Active Substance: LINACLOTIDE
     Dosage: TOOK FOR A WEEK

REACTIONS (9)
  - Gastric disorder [Unknown]
  - Impaired gastric emptying [Unknown]
  - Type 1 diabetes mellitus [Unknown]
  - COVID-19 [Unknown]
  - Fatigue [Unknown]
  - Nausea [Unknown]
  - Constipation [Unknown]
  - Illness [Unknown]
  - Decreased appetite [Unknown]
